FAERS Safety Report 12317020 (Version 1)
Quarter: 2016Q2

REPORT INFORMATION
  Report Type: Spontaneous
  Country: US (occurrence: None)
  Receive Date: 20160428
  Receipt Date: 20160428
  Transmission Date: 20160815
  Serious: No
  Sender: FDA-Public Use
  Company Number: None

PATIENT
  Age: 22 Year
  Sex: Female
  Weight: 104.78 kg

DRUGS (1)
  1. NEXPLANON [Suspect]
     Active Substance: ETONOGESTREL

REACTIONS (7)
  - Fatigue [None]
  - Mood swings [None]
  - Depression [None]
  - Feeling abnormal [None]
  - Weight increased [None]
  - Dizziness [None]
  - Fear [None]
